FAERS Safety Report 26007610 (Version 2)
Quarter: 2025Q4

REPORT INFORMATION
  Report Type: Spontaneous
  Country: US (occurrence: US)
  Receive Date: 20251106
  Receipt Date: 20251118
  Transmission Date: 20260117
  Serious: Yes (Hospitalization)
  Sender: MALLINCKRODT
  Company Number: US-MALLINCKRODT-MNK202506858

PATIENT
  Sex: Female

DRUGS (3)
  1. CORTICOTROPIN [Suspect]
     Active Substance: CORTICOTROPIN
     Indication: Rheumatoid arthritis
     Route: 030
     Dates: start: 202301
  2. ADEMPAS [Concomitant]
     Active Substance: RIOCIGUAT
     Dosage: UNKNOWN
  3. AMVUTTRA [Concomitant]
     Active Substance: VUTRISIRAN
     Dosage: UNKNOWN

REACTIONS (3)
  - Hospitalisation [Unknown]
  - Chest pain [Unknown]
  - Dizziness [Unknown]
